FAERS Safety Report 4726805-5 (Version None)
Quarter: 2005Q3

REPORT INFORMATION
  Report Type: 
  Country: None (occurrence: None)
  Receive Date: 20050725
  Receipt Date: 20050427
  Transmission Date: 20060218
  Serious: No
  Sender: FDA-Public Use
  Company Number: USA050496695

PATIENT
  Age: 12 Year
  Sex: Male

DRUGS (2)
  1. STRATTERA [Suspect]
     Indication: ATTENTION DEFICIT/HYPERACTIVITY DISORDER
     Dosage: 95 MG DAY
  2. ZOLOFT [Concomitant]

REACTIONS (4)
  - ABDOMINAL DISCOMFORT [None]
  - FLATULENCE [None]
  - INFLUENZA [None]
  - VOMITING [None]
